FAERS Safety Report 7632804-6 (Version None)
Quarter: 2011Q3

REPORT INFORMATION
  Report Type: 
  Country: None (occurrence: None)
  Receive Date: 20110725
  Receipt Date: 20110720
  Transmission Date: 20111222
  Serious: Yes (Hospitalization, Other)
  Sender: FDA-Public Use
  Company Number: JP-ABBOTT-11P-087-0734227-00

PATIENT
  Sex: Male
  Weight: 48 kg

DRUGS (6)
  1. HUMIRA [Suspect]
     Dates: start: 20110706
  2. CLOSTRIDIUM BUTYRICUM [Concomitant]
     Indication: CROHN'S DISEASE
     Route: 048
     Dates: start: 19930301
  3. HUMIRA [Suspect]
     Dosage: (80 MG)
     Dates: start: 20110502, end: 20110502
  4. HUMIRA [Suspect]
     Dates: start: 20110517, end: 20110614
  5. MESALAMINE [Concomitant]
     Indication: CROHN'S DISEASE
     Route: 048
     Dates: start: 19930301
  6. HUMIRA [Suspect]
     Indication: CROHN'S DISEASE
     Dosage: (160MG)
     Route: 058
     Dates: start: 20110419, end: 20110419

REACTIONS (2)
  - HEPATIC FUNCTION ABNORMAL [None]
  - INTESTINAL PERFORATION [None]
